FAERS Safety Report 4804544-X (Version None)
Quarter: 2005Q4

REPORT INFORMATION
  Report Type: 
  Country: None (occurrence: None)
  Receive Date: 20051020
  Receipt Date: 20050907
  Transmission Date: 20060501
  Serious: Yes (Other)
  Sender: FDA-Public Use
  Company Number: PHNU2005DE03092

PATIENT
  Age: 22 Year
  Sex: Male

DRUGS (1)
  1. RITALIN [Suspect]
     Indication: ATTENTION DEFICIT/HYPERACTIVITY DISORDER
     Dosage: UP TO 50 MG/DAY
     Route: 048
     Dates: start: 20050701, end: 20050913

REACTIONS (3)
  - HALLUCINATION, AUDITORY [None]
  - PERSECUTORY DELUSION [None]
  - SOCIAL AVOIDANT BEHAVIOUR [None]
